FAERS Safety Report 5167685-6 (Version None)
Quarter: 2006Q4

REPORT INFORMATION
  Report Type: 
  Country: None (occurrence: None)
  Receive Date: 20061201
  Receipt Date: 20061201
  Transmission Date: 20070319
  Serious: Yes (Life-Threatening, Hospitalization)
  Sender: FDA-Public Use
  Company Number: None

PATIENT
  Age: 54 Year
  Sex: Male
  Weight: 77 kg

DRUGS (2)
  1. PAMIDRONATE DISODIUM [Suspect]
     Indication: MULTIPLE MYELOMA
     Dosage: 90 MG ONE DOSE IV
     Route: 042
     Dates: start: 20061116, end: 20061116
  2. NSAIDS [Concomitant]

REACTIONS (6)
  - BACK PAIN [None]
  - HAEMODIALYSIS [None]
  - LETHARGY [None]
  - MALAISE [None]
  - PAIN [None]
  - RENAL FAILURE ACUTE [None]
